FAERS Safety Report 23772695 (Version 2)
Quarter: 2024Q2

REPORT INFORMATION
  Report Type: Spontaneous
  Country: US (occurrence: None)
  Receive Date: 20240423
  Receipt Date: 20240501
  Transmission Date: 20240716
  Serious: Yes (Death)
  Sender: FDA-Public Use
  Company Number: US-USWM, LLC-UWM202404-000023

PATIENT
  Age: 1 Year
  Sex: Male

DRUGS (10)
  1. IWILFIN [Suspect]
     Active Substance: EFLORNITHINE HYDROCHLORIDE
     Indication: Neuroblastoma
     Route: 048
     Dates: start: 20240306
  2. NEULASTA [Concomitant]
     Active Substance: PEGFILGRASTIM
     Dosage: 6MG/0.6ML
  3. METHADONE [Concomitant]
     Active Substance: METHADONE HYDROCHLORIDE
     Dosage: NOT PROVIDED
     Route: 048
  4. DEXAMETHASONE [Concomitant]
     Active Substance: DEXAMETHASONE
     Dosage: NOT PROVIDED
  5. GAS RELIEF EXTRA STRENGTH [Concomitant]
     Active Substance: DIMETHICONE
  6. ZOFRAN [Concomitant]
     Active Substance: ONDANSETRON HYDROCHLORIDE
     Dosage: NOT PROVIDED
  7. VITAMIN D3 [Concomitant]
     Active Substance: CHOLECALCIFEROL
     Dosage: 1000UNITS
  8. PROTONIX [Concomitant]
     Active Substance: PANTOPRAZOLE SODIUM
     Dosage: 40MG
  9. TYLENOL [Concomitant]
     Active Substance: ACETAMINOPHEN
     Dosage: 325
  10. XARELTO [Concomitant]
     Active Substance: RIVAROXABAN
     Dosage: 20MG

REACTIONS (2)
  - Neuroblastoma [Fatal]
  - Disease progression [Fatal]

NARRATIVE: CASE EVENT DATE: 20240314
